FAERS Safety Report 5659510-1 (Version None)
Quarter: 2008Q1

REPORT INFORMATION
  Report Type: 
  Country: None (occurrence: None)
  Receive Date: 20080311
  Receipt Date: 20080304
  Transmission Date: 20080703
  Serious: Yes (Other)
  Sender: FDA-Public Use
  Company Number: PHHY2008BR02683

PATIENT
  Age: 91 Year
  Sex: Male

DRUGS (1)
  1. TEGRETOL [Suspect]
     Indication: TRANSIENT ISCHAEMIC ATTACK
     Dosage: 200 MG, UNK

REACTIONS (2)
  - ASTHMA [None]
  - EMPHYSEMA [None]
